FAERS Safety Report 6346322-9 (Version None)
Quarter: 2009Q3

REPORT INFORMATION
  Report Type: 
  Country: None (occurrence: None)
  Receive Date: 20090909
  Receipt Date: 20090902
  Transmission Date: 20100115
  Serious: Yes (Hospitalization, Other)
  Sender: FDA-Public Use
  Company Number: DE-ABBOTT-09P-062-0595740-00

PATIENT
  Sex: Female

DRUGS (2)
  1. ENANTONE -GYN MONATSDEPOT [Suspect]
     Indication: ENDOMETRIOSIS
     Route: 058
     Dates: start: 20081211, end: 20081211
  2. ENANTONE -GYN MONATSDEPOT [Suspect]
     Route: 058
     Dates: start: 20090217, end: 20090316

REACTIONS (1)
  - ABORTION SPONTANEOUS [None]
